FAERS Safety Report 20207019 (Version 1)
Quarter: 2021Q4

REPORT INFORMATION
  Report Type: Spontaneous
  Country: IN (occurrence: IN)
  Receive Date: 20211220
  Receipt Date: 20211220
  Transmission Date: 20220303
  Serious: Yes (Other)
  Sender: FDA-Public Use
  Company Number: IN-NOVARTISPH-NVSC2021IN281041

PATIENT
  Age: 56 Year
  Sex: Male

DRUGS (2)
  1. GLIVEC [Suspect]
     Active Substance: IMATINIB MESYLATE
     Indication: Gastrointestinal stromal tumour
     Dosage: 400 MG, QD
     Route: 048
  2. GLIVEC [Suspect]
     Active Substance: IMATINIB MESYLATE
     Dosage: 800 MG, QD
     Route: 048

REACTIONS (7)
  - Graft versus host disease [Unknown]
  - Scleroderma [Unknown]
  - Impaired healing [Unknown]
  - Skin ulcer [Unknown]
  - Wound infection [Unknown]
  - Skin exfoliation [Unknown]
  - Skin erosion [Unknown]
